FAERS Safety Report 7061523-2 (Version None)
Quarter: 2010Q4

REPORT INFORMATION
  Report Type: 
  Country: None (occurrence: None)
  Receive Date: 20101026
  Receipt Date: 20101014
  Transmission Date: 20110411
  Serious: Yes (Hospitalization)
  Sender: FDA-Public Use
  Company Number: US-PFIZER INC-2010013967

PATIENT
  Sex: Male
  Weight: 104.76 kg

DRUGS (16)
  1. SUTENT [Suspect]
     Indication: TRANSITIONAL CELL CARCINOMA
     Dosage: 37.5 MG, 1X/DAY
     Route: 048
     Dates: start: 20090714, end: 20100122
  2. ALPRAZOLAM [Concomitant]
     Indication: INSOMNIA
     Dosage: 0.75 MG, QHS
     Route: 048
     Dates: start: 20080801
  3. METOPROLOL [Concomitant]
     Indication: CARDIOVASCULAR DISORDER
     Dosage: 50 MG, UNK
     Route: 048
     Dates: start: 19910101
  4. NITROGLYCERIN [Concomitant]
     Indication: CARDIOVASCULAR DISORDER
     Dosage: UNK
     Route: 060
     Dates: start: 19910101
  5. SIMVASTATIN [Concomitant]
     Indication: HYPERCHOLESTEROLAEMIA
     Dosage: 40 MG, 1X/DAY
     Route: 048
     Dates: start: 19900101, end: 20090917
  6. VITAMIN B COMPLEX CAP [Concomitant]
     Indication: SUPPLEMENTATION THERAPY
     Dosage: EVERY DAY
     Route: 048
     Dates: start: 20000101
  7. VITAMIN E [Concomitant]
     Indication: SUPPLEMENTATION THERAPY
     Dosage: EVERY DAY
     Route: 048
     Dates: start: 20000101, end: 20090917
  8. COMPAZINE [Concomitant]
     Indication: NAUSEA
     Dosage: 10 MG, AS NEEDED
     Route: 048
     Dates: start: 20090908
  9. PROTONIX [Concomitant]
     Indication: DYSPEPSIA
     Dosage: 40 MG, EVERY DAY
     Route: 048
     Dates: start: 20091002
  10. INFLUENZA VACCINE [Concomitant]
     Indication: PROPHYLAXIS
     Dosage: 0.5 ML, UNK
     Route: 030
     Dates: start: 20091019, end: 20091019
  11. OXYCODONE [Concomitant]
  12. ZOLOFT [Concomitant]
  13. WELLBUTRIN [Concomitant]
  14. LOMOTIL [Concomitant]
  15. POTASSIUM [Concomitant]
  16. NEBIVOLOL [Concomitant]

REACTIONS (4)
  - COGNITIVE DISORDER [None]
  - FALL [None]
  - NORMAL PRESSURE HYDROCEPHALUS [None]
  - TRANSIENT ISCHAEMIC ATTACK [None]
